FAERS Safety Report 5415966-0 (Version None)
Quarter: 2007Q3

REPORT INFORMATION
  Report Type: 
  Country: None (occurrence: None)
  Receive Date: 20070718
  Receipt Date: 20070226
  Transmission Date: 20080115
  Serious: Yes (Other)
  Sender: FDA-Public Use
  Company Number: 2007002144

PATIENT
  Sex: Female
  Weight: 101.6 kg

DRUGS (5)
  1. CELEBREX [Suspect]
     Indication: ARTHRALGIA
     Dates: start: 20020306, end: 20030101
  2. BEXTRA [Suspect]
     Indication: ARTHRALGIA
     Dates: end: 20040101
  3. NEURONTIN [Suspect]
     Indication: ARTHRALGIA
     Dosage: (100 MG)
  4. ZYRTEC [Concomitant]
  5. RITALIN [Concomitant]

REACTIONS (7)
  - ARTHRALGIA [None]
  - DRUG INEFFECTIVE [None]
  - DYSPEPSIA [None]
  - FIBROMYALGIA [None]
  - GASTROINTESTINAL DISORDER [None]
  - GASTROINTESTINAL PAIN [None]
  - MYOCARDIAL INFARCTION [None]
